FAERS Safety Report 6083651-0 (Version None)
Quarter: 2009Q1

REPORT INFORMATION
  Report Type: 
  Country: None (occurrence: None)
  Receive Date: 20090219
  Receipt Date: 20090209
  Transmission Date: 20090719
  Serious: Yes (Hospitalization, Other)
  Sender: FDA-Public Use
  Company Number: PHHY2008MX23994

PATIENT
  Age: 64 Year
  Sex: Female

DRUGS (3)
  1. DIOVAN [Suspect]
     Indication: HYPERTENSION
     Dosage: 80 MG, QD
     Dates: start: 20050401
  2. DIOVAN [Suspect]
     Dosage: UNK
     Dates: start: 20090202
  3. DIOVAN HCT [Suspect]
     Indication: HYPERTENSION
     Dosage: UNK
     Dates: start: 20050101

REACTIONS (5)
  - BIOPSY [None]
  - BREAST CANCER [None]
  - CATHETER PLACEMENT [None]
  - HYPOTENSION [None]
  - MASTECTOMY [None]
